FAERS Safety Report 8412299-5 (Version None)
Quarter: 2012Q2

REPORT INFORMATION
  Report Type: 
  Country: None (occurrence: None)
  Receive Date: 20120605
  Receipt Date: 20120529
  Transmission Date: 20120825
  Serious: Yes (Other)
  Sender: FDA-Public Use
  Company Number: US-BAYER-2012-053868

PATIENT

DRUGS (3)
  1. IBUPROFEN (ADVIL) [Concomitant]
  2. ALEVE (CAPLET) [Suspect]
  3. EFFEXOR XR [Concomitant]
     Dosage: 37.5 MG, UNK

REACTIONS (3)
  - TOOTHACHE [None]
  - ABSCESS BACTERIAL [None]
  - TOOTH ABSCESS [None]
